FAERS Safety Report 9163386 (Version 2)
Quarter: 2013Q4

REPORT INFORMATION
  Report Type: Spontaneous
  Country: GB (occurrence: GB)
  Receive Date: 20130314
  Receipt Date: 20131016
  Transmission Date: 20140711
  Serious: Yes (Disabling, Other)
  Sender: FDA-Public Use
  Company Number: GB-B.I. PHARMACEUTICALS,INC./RIDGEFIELD-2013-UK-00337UK

PATIENT
  Age: 78 Year
  Sex: Female
  Weight: 65.3 kg

DRUGS (9)
  1. PRADAXA [Suspect]
     Dosage: 300 MG
     Dates: start: 20130206, end: 20130218
  2. ATORVASTATIN [Concomitant]
     Dates: start: 20121024
  3. BISOPROLOL [Concomitant]
     Dates: start: 20121024
  4. CANDESARTAN [Concomitant]
     Dates: start: 20121024
  5. HYPROMELLOSE [Concomitant]
     Dates: start: 20121122
  6. LEVETIRACETAM [Concomitant]
     Dates: start: 20121122
  7. LEVOTHYROXINE [Concomitant]
     Dates: start: 20121129
  8. PHENOBARBITAL [Concomitant]
     Dates: start: 20121024
  9. WARFARIN SODIUM [Concomitant]
     Dates: start: 20121122, end: 20130114

REACTIONS (3)
  - Vomiting [Recovered/Resolved]
  - Nausea [Recovered/Resolved]
  - Paraesthesia [Recovered/Resolved]
